FAERS Safety Report 8599880 (Version 3)
Quarter: 2013Q1

REPORT INFORMATION
  Report Type: Spontaneous
  Country: US (occurrence: US)
  Receive Date: 20120605
  Receipt Date: 20130107
  Transmission Date: 20140127
  Serious: Yes (Hospitalization)
  Sender: FDA-Public Use
  Company Number: US-ASTRAZENECA-2012SE32927

PATIENT
  Age: 54 Year
  Sex: Female

DRUGS (3)
  1. NEXIUM [Suspect]
     Route: 048
  2. TOPROL XL [Suspect]
     Route: 048
  3. CRESTOR [Suspect]
     Route: 048

REACTIONS (8)
  - Chest pain [Unknown]
  - Dyspepsia [Unknown]
  - Vascular calcification [Unknown]
  - Hernia [Unknown]
  - Blood cholesterol increased [Unknown]
  - Gastritis [Unknown]
  - Abdominal discomfort [Unknown]
  - Drug dose omission [Unknown]
